FAERS Safety Report 5362440-6 (Version None)
Quarter: 2007Q2

REPORT INFORMATION
  Report Type: 
  Country: None (occurrence: None)
  Receive Date: 20070619
  Receipt Date: 20070611
  Transmission Date: 20071010
  Serious: Yes (Hospitalization, Disabling)
  Sender: FDA-Public Use
  Company Number: PHBS2007JP02430

PATIENT
  Age: 55 Year
  Sex: Female
  Weight: 44 kg

DRUGS (11)
  1. LIORESAL [Suspect]
     Indication: PAIN IN EXTREMITY
     Dosage: 10 MG/DAY
     Route: 048
     Dates: start: 20070202, end: 20070204
  2. MERISLON [Concomitant]
  3. CEPHADOL [Concomitant]
  4. BISOLVON [Concomitant]
  5. PRORENAL [Concomitant]
  6. MICARDIS [Concomitant]
  7. NEUROTROPIN [Concomitant]
  8. RENAGEL [Concomitant]
  9. CALCIUM CARBONATE [Concomitant]
  10. SORBITOL [Concomitant]
  11. ALOSENN [Concomitant]

REACTIONS (11)
  - ABASIA [None]
  - ABNORMAL BEHAVIOUR [None]
  - BLOOD PRESSURE INCREASED [None]
  - DISORIENTATION [None]
  - DYSKINESIA [None]
  - HYPERVENTILATION [None]
  - MENTAL DISORDER [None]
  - PAIN [None]
  - SOMNOLENCE [None]
  - UNRESPONSIVE TO STIMULI [None]
  - VOMITING [None]
